FAERS Safety Report 18446901 (Version 11)
Quarter: 2025Q2

REPORT INFORMATION
  Report Type: Spontaneous
  Country: US (occurrence: US)
  Receive Date: 20201030
  Receipt Date: 20250422
  Transmission Date: 20250716
  Serious: Yes (Hospitalization, Other)
  Sender: PFIZER
  Company Number: US-PFIZER INC-2020419202

PATIENT
  Age: 77 Year
  Sex: Male
  Weight: 105.23 kg

DRUGS (21)
  1. VYNDAMAX [Suspect]
     Active Substance: TAFAMIDIS
     Indication: Cardiac failure
     Dosage: 61 MG, 1X/DAY (CURED WITH RADIATION AND CHEMOTHERAPY)
     Route: 048
     Dates: start: 202001
  2. VYNDAMAX [Suspect]
     Active Substance: TAFAMIDIS
     Indication: Arrhythmia
     Dosage: 61 MG, 1X/DAY
     Route: 048
     Dates: start: 202007
  3. VYNDAMAX [Suspect]
     Active Substance: TAFAMIDIS
     Indication: Cardiac disorder
     Dosage: TAKE 1 CAPSULE BY MOUTH DAILY
     Route: 048
  4. VYNDAMAX [Suspect]
     Active Substance: TAFAMIDIS
     Indication: Cardiac amyloidosis
  5. VYNDAMAX [Suspect]
     Active Substance: TAFAMIDIS
     Indication: Amyloidosis
  6. ALLOPURINOL [Concomitant]
     Active Substance: ALLOPURINOL
     Indication: Gout
     Dosage: 200 MG, 1X/DAY
  7. ALFUZOSIN [Concomitant]
     Active Substance: ALFUZOSIN
  8. COLCHICINE [Concomitant]
     Active Substance: COLCHICINE
     Indication: Gout
  9. CINNAMON [Concomitant]
     Active Substance: CINNAMON
     Indication: Diabetes mellitus
  10. LANOXIN [Concomitant]
     Active Substance: DIGOXIN
     Indication: Cardiac failure
  11. CYMBALTA [Concomitant]
     Active Substance: DULOXETINE HYDROCHLORIDE
     Indication: Depression
  12. INSPRA [Concomitant]
     Active Substance: EPLERENONE
     Indication: Cardiac disorder
     Dosage: 25 MG, 1X/DAY
  13. B12 1000 SR [Concomitant]
  14. LOPRESSOR [Concomitant]
     Active Substance: METOPROLOL TARTRATE
     Indication: Atrial fibrillation
  15. OXYBUTYNIN [Concomitant]
     Active Substance: OXYBUTYNIN
     Indication: Bladder disorder
  16. PRAVACHOL [Concomitant]
     Active Substance: PRAVASTATIN SODIUM
     Indication: Blood cholesterol
  17. DEMADEX [Concomitant]
     Active Substance: TORSEMIDE
  18. CALCIUM ASCORBATE [Concomitant]
     Active Substance: CALCIUM ASCORBATE
  19. VITAMIN D NOS [Concomitant]
     Active Substance: CHOLECALCIFEROL\ERGOCALCIFEROL
  20. WARFARIN [Concomitant]
     Active Substance: WARFARIN
     Indication: Blood disorder
  21. ZINC [Concomitant]
     Active Substance: ZINC

REACTIONS (18)
  - Neuropathy peripheral [Not Recovered/Not Resolved]
  - Hypoacusis [Not Recovered/Not Resolved]
  - Fatigue [Not Recovered/Not Resolved]
  - Sensory disturbance [Not Recovered/Not Resolved]
  - Pruritus [Not Recovered/Not Resolved]
  - Hypoaesthesia [Not Recovered/Not Resolved]
  - Condition aggravated [Not Recovered/Not Resolved]
  - Paraesthesia [Not Recovered/Not Resolved]
  - Balance disorder [Not Recovered/Not Resolved]
  - Peripheral coldness [Not Recovered/Not Resolved]
  - Confusional state [Not Recovered/Not Resolved]
  - Coordination abnormal [Not Recovered/Not Resolved]
  - Sensory loss [Not Recovered/Not Resolved]
  - Dyspnoea [Not Recovered/Not Resolved]
  - Vitamin D deficiency [Not Recovered/Not Resolved]
  - Drug ineffective [Not Recovered/Not Resolved]
  - Blood creatinine increased [Unknown]
  - Weight decreased [Unknown]
